FAERS Safety Report 19442022 (Version 1)
Quarter: 2021Q2

REPORT INFORMATION
  Report Type: Spontaneous
  Country: US (occurrence: US)
  Receive Date: 20210618
  Receipt Date: 20210618
  Transmission Date: 20210717
  Serious: Yes (Hospitalization)
  Sender: FDA-Public Use
  Company Number: None

PATIENT
  Age: 52 Year
  Sex: Male

DRUGS (1)
  1. PAMIDRONATE INJ 90/10ML [Suspect]
     Active Substance: PAMIDRONATE DISODIUM
     Dosage: ?          OTHER DOSE:UNSURE;OTHER FREQUENCY:UNSURE;?
     Route: 058
     Dates: start: 202106

REACTIONS (3)
  - Pyrexia [None]
  - Chills [None]
  - Vomiting [None]

NARRATIVE: CASE EVENT DATE: 20210603
